FAERS Safety Report 8580145-5 (Version None)
Quarter: 2012Q3

REPORT INFORMATION
  Report Type: 
  Country: None (occurrence: None)
  Receive Date: 20120808
  Receipt Date: 20120803
  Transmission Date: 20120928
  Serious: Yes (Other)
  Sender: FDA-Public Use
  Company Number: US-PFIZER INC-2012170435

PATIENT
  Age: 75 Year
  Sex: Female
  Weight: 102 kg

DRUGS (1)
  1. TOVIAZ [Suspect]
     Indication: PRODUCT USED FOR UNKNOWN INDICATION
     Dosage: UNK

REACTIONS (3)
  - NAUSEA [None]
  - INTESTINAL OBSTRUCTION [None]
  - DRUG INEFFECTIVE [None]
